FAERS Safety Report 4362626-3 (Version None)
Quarter: 2004Q2

REPORT INFORMATION
  Report Type: 
  Country: None (occurrence: None)
  Receive Date: 20040520
  Receipt Date: 20040510
  Transmission Date: 20050107
  Serious: Yes (Hospitalization)
  Sender: FDA-Public Use
  Company Number: US-JNJFOC-20040204046

PATIENT
  Age: 67 Year
  Sex: Male

DRUGS (1)
  1. DURAGESIC [Suspect]
     Indication: PAIN
     Dosage: 25 UG/HR, TRANSDERMAL
     Route: 062

REACTIONS (2)
  - MENTAL DISORDER [None]
  - PHARMACEUTICAL PRODUCT COMPLAINT [None]
